FAERS Safety Report 4895252-8 (Version None)
Quarter: 2006Q1

REPORT INFORMATION
  Report Type: 
  Country: None (occurrence: None)
  Receive Date: 20060130
  Receipt Date: 20050606
  Transmission Date: 20060701
  Serious: Yes (Other)
  Sender: FDA-Public Use
  Company Number: FR-GLAXOSMITHKLINE-B0383911A

PATIENT
  Age: 71 Year
  Sex: Male

DRUGS (1)
  1. AVANDAMET [Suspect]
     Route: 048
     Dates: start: 20041101, end: 20050601

REACTIONS (2)
  - HEPATITIS E [None]
  - TRANSAMINASES INCREASED [None]
